FAERS Safety Report 12579809 (Version 1)
Quarter: 2016Q3

REPORT INFORMATION
  Report Type: Spontaneous
  Country: FR (occurrence: FR)
  Receive Date: 20160721
  Receipt Date: 20160721
  Transmission Date: 20161109
  Serious: Yes (Hospitalization)
  Sender: FDA-Public Use
  Company Number: FR-PFIZER INC-2016343466

PATIENT
  Age: 67 Year
  Sex: Female

DRUGS (19)
  1. ATROPINE SULFATE AGUETTANT [Concomitant]
     Active Substance: ATROPINE SULFATE
     Dosage: 0.25 MG, CYCLIC
     Route: 042
     Dates: start: 20160608, end: 20160608
  2. IRINOTECAN HOSPIRA [Suspect]
     Active Substance: IRINOTECAN
     Dosage: 280 MG, CYCLIC
     Route: 042
     Dates: start: 20160608, end: 20160608
  3. ONDANSETRON ACCORD [Concomitant]
     Active Substance: ONDANSETRON
     Indication: PREMEDICATION
     Dosage: 8 MG, CYCLIC
     Route: 042
     Dates: start: 20160520, end: 20160520
  4. FOLINATE CALCIUM SANDOZ [Concomitant]
     Indication: PREMEDICATION
     Dosage: 592 MG, CYCLIC
     Route: 042
     Dates: start: 20160520, end: 20160520
  5. ONDANSETRON ACCORD [Concomitant]
     Active Substance: ONDANSETRON
     Dosage: 8 MG, CYCLIC
     Route: 042
     Dates: start: 20160608, end: 20160608
  6. METHYLPREDNISOLONE MYLAN /00049602/ [Concomitant]
     Active Substance: METHYLPREDNISOLONE SODIUM SUCCINATE
     Indication: PREMEDICATION
     Dosage: 49 MG, CYCLIC
     Route: 042
     Dates: start: 20160520, end: 20160520
  7. TRAMADOL. [Concomitant]
     Active Substance: TRAMADOL
  8. OROZAMUDOL [Concomitant]
     Active Substance: TRAMADOL
  9. SPASFON /00765801/ [Concomitant]
     Active Substance: PHLOROGLUCINOL\1,3,5-TRIMETHOXYBENZENE
  10. OXALIPLATIN ACCORD [Suspect]
     Active Substance: OXALIPLATIN
     Dosage: 126 MG, CYCLIC
     Route: 042
     Dates: start: 20160608, end: 20160608
  11. IRINOTECAN HOSPIRA [Suspect]
     Active Substance: IRINOTECAN
     Indication: COLORECTAL CANCER
     Dosage: 280 MG, CYCLIC
     Route: 042
     Dates: start: 20160520, end: 20160520
  12. FLUOROURACILE ACCORD [Suspect]
     Active Substance: FLUOROURACIL
     Indication: COLORECTAL CANCER
     Dosage: 4100 MG, CYCLIC
     Route: 042
     Dates: start: 20160520, end: 20160520
  13. FLUOROURACILE ACCORD [Suspect]
     Active Substance: FLUOROURACIL
     Dosage: 4100 MG, CYCLIC
     Route: 042
     Dates: start: 20160608, end: 20160608
  14. DOLIPRANE [Concomitant]
     Active Substance: ACETAMINOPHEN
  15. METHYLPREDNISOLONE MYLAN /00049602/ [Concomitant]
     Active Substance: METHYLPREDNISOLONE SODIUM SUCCINATE
     Dosage: 49 MG, CYCLIC
     Route: 042
     Dates: start: 20160608, end: 20160608
  16. ATROPINE SULFATE AGUETTANT [Concomitant]
     Active Substance: ATROPINE SULFATE
     Indication: PREMEDICATION
     Dosage: 0.25 MG, CYCLIC
     Route: 042
     Dates: start: 20160520, end: 20160520
  17. OXALIPLATIN ACCORD [Suspect]
     Active Substance: OXALIPLATIN
     Indication: COLORECTAL CANCER
     Dosage: 126 MG, CYCLIC
     Route: 042
     Dates: start: 20160520, end: 20160520
  18. FOLINATE CALCIUM SANDOZ [Concomitant]
     Dosage: 592 MG, CYCLIC
     Route: 042
     Dates: start: 20160608, end: 20160608
  19. PRIMPERAN [Concomitant]
     Active Substance: METOCLOPRAMIDE HYDROCHLORIDE

REACTIONS (2)
  - Pancytopenia [Recovered/Resolved]
  - Pyrexia [Recovered/Resolved]

NARRATIVE: CASE EVENT DATE: 20160617
